FAERS Safety Report 4907624-3 (Version None)
Quarter: 2006Q1

REPORT INFORMATION
  Report Type: 
  Country: None (occurrence: None)
  Receive Date: 20060210
  Receipt Date: 20051206
  Transmission Date: 20060701
  Serious: Yes (Hospitalization, Other)
  Sender: FDA-Public Use
  Company Number: CH-MERCK-0512CHE00009

PATIENT
  Age: 64 Year
  Sex: Male
  Weight: 92 kg

DRUGS (22)
  1. VIOXX [Suspect]
     Indication: PROCEDURAL PAIN
     Route: 048
     Dates: start: 20040917, end: 20040926
  2. VALDECOXIB [Suspect]
     Indication: BACK PAIN
     Route: 048
     Dates: start: 20041008, end: 20041019
  3. METOPROLOL TARTRATE [Concomitant]
     Route: 065
  4. HYDROCHLOROTHIAZIDE AND VALSARTAN [Concomitant]
     Route: 065
  5. ALFUZOSIN HYDROCHLORIDE [Concomitant]
     Route: 065
  6. SIMVASTATIN [Concomitant]
     Route: 048
  7. AMLODIPINE BESYLATE [Concomitant]
     Route: 048
  8. DOXAZOSIN MESYLATE [Concomitant]
     Route: 048
  9. OXAZEPAM [Concomitant]
     Route: 048
  10. LEVETIRACETAM [Concomitant]
     Route: 048
  11. ALPRAZOLAM [Concomitant]
     Route: 048
  12. DUTASTERIDE [Concomitant]
     Route: 065
  13. ACENOCOUMAROL [Concomitant]
     Route: 065
  14. ACETAMINOPHEN [Concomitant]
     Route: 048
     Dates: start: 20040917, end: 20040926
  15. ACETAMINOPHEN [Concomitant]
     Route: 048
     Dates: start: 20040927, end: 20041004
  16. ACETAMINOPHEN [Concomitant]
     Route: 048
     Dates: start: 20041013, end: 20041013
  17. BROMELAINS [Concomitant]
     Route: 065
     Dates: end: 20050925
  18. DICLOFENAC SODIUM [Concomitant]
     Route: 065
     Dates: start: 20050921
  19. LATANOPROST [Concomitant]
     Route: 065
  20. DICLOFENAC EPOLAMINE [Concomitant]
     Route: 065
  21. [THERAPY UNSPECIFIED] [Concomitant]
     Route: 065
  22. MEFENAMIC ACID [Concomitant]
     Route: 065

REACTIONS (3)
  - ARRHYTHMIA [None]
  - CEREBROVASCULAR ACCIDENT [None]
  - TACHYCARDIA [None]
